FAERS Safety Report 7875439-2 (Version None)
Quarter: 2011Q4

REPORT INFORMATION
  Report Type: 
  Country: None (occurrence: None)
  Receive Date: 20111031
  Receipt Date: 20111021
  Transmission Date: 20120403
  Serious: Yes (Other)
  Sender: FDA-Public Use
  Company Number: US-BAYER-2011-103592

PATIENT
  Age: 92 Year
  Sex: Female

DRUGS (3)
  1. ANTIHYPERTENSIVES [Concomitant]
  2. ASPIRIN [Suspect]
     Route: 048
  3. ALEVE (CAPLET) [Suspect]
     Dosage: PACKAGE SIZE: NOT SPECIFIED
     Route: 048
     Dates: start: 20111019

REACTIONS (2)
  - HAEMORRHAGE [None]
  - SKIN DISCOLOURATION [None]
